FAERS Safety Report 16919887 (Version 1)
Quarter: 2019Q4

REPORT INFORMATION
  Report Type: Spontaneous
  Country: US (occurrence: US)
  Receive Date: 20190823
  Receipt Date: 20190823
  Transmission Date: 20200122
  Serious: No
  Sender: FDA-Public Use
  Company Number: None

PATIENT
  Age: 77 Year
  Sex: Female

DRUGS (1)
  1. IMATINIB TAB (X30) [Suspect]
     Active Substance: IMATINIB MESYLATE
     Route: 048
     Dates: start: 201001

REACTIONS (5)
  - Skin infection [None]
  - Plasma cell myeloma [None]
  - Skin disorder [None]
  - Polycythaemia vera [None]
  - Skin lesion [None]

NARRATIVE: CASE EVENT DATE: 20190823
